FAERS Safety Report 16240668 (Version 1)
Quarter: 2019Q2

REPORT INFORMATION
  Report Type: Spontaneous
  Country: DE (occurrence: DE)
  Receive Date: 20190425
  Receipt Date: 20190425
  Transmission Date: 20190711
  Serious: Yes (Other)
  Sender: FDA-Public Use
  Company Number: PHHY2019DE051594

PATIENT
  Age: 68 Year
  Sex: Male
  Weight: 94 kg

DRUGS (2)
  1. AZOPT [Suspect]
     Active Substance: BRINZOLAMIDE
     Indication: OPEN ANGLE GLAUCOMA
     Dosage: UNK UNK, BID
     Route: 047
     Dates: start: 20181220, end: 20190104
  2. TIMO-STULLN [Concomitant]
     Indication: OCULAR HYPERTENSION
     Dosage: UNK UNK, BID
     Route: 047
     Dates: start: 20190204

REACTIONS (6)
  - Blister [Recovered/Resolved]
  - Urticaria [Recovered/Resolved]
  - Skin discolouration [Recovered/Resolved]
  - Angioedema [Recovered/Resolved]
  - Pain [Recovered/Resolved]
  - Peripheral swelling [Recovered/Resolved]

NARRATIVE: CASE EVENT DATE: 20181220
